FAERS Safety Report 7077487-1 (Version None)
Quarter: 2010Q4

REPORT INFORMATION
  Report Type: 
  Country: None (occurrence: None)
  Receive Date: 20101101
  Receipt Date: 20101020
  Transmission Date: 20110411
  Serious: Yes (Death, Hospitalization, Other)
  Sender: FDA-Public Use
  Company Number: DE-ELI_LILLY_AND_COMPANY-DE201005005070

PATIENT
  Sex: Male

DRUGS (4)
  1. FORTEO [Suspect]
     Indication: OSTEOPOROSIS
     Dosage: UNK, UNKNOWN
     Route: 058
     Dates: start: 20100413, end: 20100501
  2. KORTISON [Concomitant]
     Dosage: UNK, UNKNOWN
     Route: 065
  3. OXYGEN [Concomitant]
     Dosage: UNK, UNKNOWN
     Route: 065
  4. MORPHINE [Concomitant]
     Dosage: UNK, UNKNOWN
     Route: 048

REACTIONS (3)
  - CARDIAC DISORDER [None]
  - LUNG DISORDER [None]
  - PNEUMONIA [None]
